FAERS Safety Report 7761601-6 (Version None)
Quarter: 2011Q3

REPORT INFORMATION
  Report Type: 
  Country: None (occurrence: None)
  Receive Date: 20110915
  Receipt Date: 20110830
  Transmission Date: 20111222
  Serious: Yes (Other)
  Sender: FDA-Public Use
  Company Number: 2011AP001949

PATIENT
  Age: 27 Year
  Sex: Female

DRUGS (1)
  1. CITALOPRAM HYDROBROMIDE [Suspect]
     Indication: PRODUCT USED FOR UNKNOWN INDICATION
     Dosage: 40;60;50 MG, QD

REACTIONS (6)
  - SUICIDAL IDEATION [None]
  - DEPRESSION [None]
  - MOOD ALTERED [None]
  - AGITATION [None]
  - ANXIETY [None]
  - MORBID THOUGHTS [None]
